FAERS Safety Report 5840859-4 (Version None)
Quarter: 2008Q3

REPORT INFORMATION
  Report Type: 
  Country: None (occurrence: None)
  Receive Date: 20080811
  Receipt Date: 20080728
  Transmission Date: 20090109
  Serious: No
  Sender: FDA-Public Use
  Company Number: US-BOEHRINGER INGELHEIM GMBH, GERMANY-2008-BP-10357BP

PATIENT
  Sex: Female

DRUGS (11)
  1. SPIRIVA [Suspect]
     Indication: CHRONIC OBSTRUCTIVE PULMONARY DISEASE
     Route: 055
     Dates: start: 20070101
  2. SPIRIVA [Suspect]
     Indication: EMPHYSEMA
  3. SPIRIVA [Suspect]
     Indication: DYSPNOEA
  4. OXYGEN [Concomitant]
  5. ALBUTEROL [Concomitant]
     Route: 055
  6. ACCOLATE [Concomitant]
  7. CALCIUM + D [Concomitant]
  8. CELEXA [Concomitant]
  9. ALLEGRA [Concomitant]
  10. ATIVAN [Concomitant]
  11. ALBUTEROL SULFATE [Concomitant]

REACTIONS (1)
  - DRUG INEFFECTIVE [None]
